FAERS Safety Report 15670234 (Version 7)
Quarter: 2020Q3

REPORT INFORMATION
  Report Type: Spontaneous
  Country: US (occurrence: US)
  Receive Date: 20181129
  Receipt Date: 20200914
  Transmission Date: 20201102
  Serious: No
  Sender: FDA-Public Use
  Company Number: US-SA-2018SA323769

PATIENT

DRUGS (2)
  1. FABRAZYME [Suspect]
     Active Substance: AGALSIDASE BETA
     Indication: FABRY^S DISEASE
     Dosage: 0.97 MG/KG, QOW
     Route: 041
     Dates: start: 20160329
  2. FABRAZYME [Suspect]
     Active Substance: AGALSIDASE BETA
     Dosage: 0.97 MG/KG
     Route: 041
     Dates: start: 20181115

REACTIONS (6)
  - Product dose omission issue [Unknown]
  - Vomiting [Unknown]
  - Nausea [Recovered/Resolved]
  - Malaise [Unknown]
  - Pyrexia [Recovered/Resolved]
  - Weight increased [Unknown]

NARRATIVE: CASE EVENT DATE: 201811
